FAERS Safety Report 21635994 (Version 1)
Quarter: 2022Q4

REPORT INFORMATION
  Report Type: Spontaneous
  Country: JP (occurrence: JP)
  Receive Date: 20221123
  Receipt Date: 20221123
  Transmission Date: 20230112
  Serious: Yes (Hospitalization, Other)
  Sender: FDA-Public Use
  Company Number: JP-COLLEGIUM PHARMACEUTICAL, INC.-20221100445

PATIENT

DRUGS (1)
  1. ELYXYB [Suspect]
     Active Substance: CELECOXIB
     Indication: Rib fracture
     Dosage: UNK, UNKNOWN
     Route: 048

REACTIONS (6)
  - Vascular pseudoaneurysm [Recovered/Resolved]
  - Fatigue [Recovered/Resolved]
  - Hypotension [Recovered/Resolved]
  - Anaemia [Recovered/Resolved]
  - Gastric ulcer [Recovering/Resolving]
  - Gastrointestinal haemorrhage [Recovered/Resolved]
